FAERS Safety Report 25724958 (Version 1)
Quarter: 2025Q3

REPORT INFORMATION
  Report Type: Spontaneous
  Country: US (occurrence: US)
  Receive Date: 20250826
  Receipt Date: 20250826
  Transmission Date: 20251020
  Serious: No
  Sender: AMNEAL
  Company Number: US-AMNEAL PHARMACEUTICALS-2025-AMRX-02480

PATIENT
  Sex: Female
  Weight: 45.351 kg

DRUGS (1)
  1. CREXONT [Suspect]
     Active Substance: CARBIDOPA\LEVODOPA
     Indication: Parkinson^s disease
     Dosage: 35/140MG, 2 /DAY
     Route: 065
     Dates: start: 202412

REACTIONS (2)
  - Dyskinesia [Unknown]
  - Product substitution issue [Unknown]
